FAERS Safety Report 8588008-6 (Version None)
Quarter: 2012Q3

REPORT INFORMATION
  Report Type: 
  Country: None (occurrence: None)
  Receive Date: 20120813
  Receipt Date: 20120723
  Transmission Date: 20120928
  Serious: No
  Sender: FDA-Public Use
  Company Number: US-009507513-1207USA009147

PATIENT

DRUGS (3)
  1. CRIXIVAN [Suspect]
     Indication: HIV INFECTION
     Route: 048
  2. LAMIVUDINE + ZIDOVUDINE [Concomitant]
     Indication: HIV INFECTION
  3. VENLAFAXINE HYDROCHOLRIDE [Interacting]
     Indication: MAJOR DEPRESSION
     Dosage: 150 MG, QD

REACTIONS (2)
  - THERAPEUTIC RESPONSE DECREASED [None]
  - DRUG INTERACTION [None]
